FAERS Safety Report 7927928-X (Version None)
Quarter: 2011Q4

REPORT INFORMATION
  Report Type: 
  Country: None (occurrence: None)
  Receive Date: 20111118
  Receipt Date: 20111116
  Transmission Date: 20120403
  Serious: Yes (Death, Other)
  Sender: FDA-Public Use
  Company Number: JP-SANOFI-AVENTIS-2011SA075831

PATIENT

DRUGS (3)
  1. DOCETAXEL [Suspect]
     Indication: NON-SMALL CELL LUNG CANCER STAGE III
     Route: 065
  2. CARBOPLATIN [Suspect]
     Indication: NON-SMALL CELL LUNG CANCER STAGE III
     Dosage: DOSE: AUC 6 OR AUC 3
     Route: 065
  3. THERAPEUTIC RADIOPHARMACEUTICALS [Suspect]
     Indication: NON-SMALL CELL LUNG CANCER STAGE III
     Dosage: TD 40 GY
     Route: 038

REACTIONS (3)
  - WHITE BLOOD CELL COUNT DECREASED [None]
  - RADIATION PNEUMONITIS [None]
  - NEUTROPHIL COUNT DECREASED [None]
